FAERS Safety Report 7100028-7 (Version None)
Quarter: 2010Q4

REPORT INFORMATION
  Report Type: 
  Country: None (occurrence: None)
  Receive Date: 20101112
  Receipt Date: 20100903
  Transmission Date: 20110411
  Serious: Yes (Death, Hospitalization)
  Sender: FDA-Public Use
  Company Number: IN-SANOFI-AVENTIS-2010SA030228

PATIENT
  Age: 76 Year
  Sex: Male
  Weight: 67 kg

DRUGS (2)
  1. LANTUS [Suspect]
     Indication: TYPE 2 DIABETES MELLITUS
     Route: 058
     Dates: start: 20091030, end: 20100413
  2. APIDRA [Suspect]
     Indication: TYPE 2 DIABETES MELLITUS
     Route: 058
     Dates: start: 20091030, end: 20100413

REACTIONS (1)
  - MYOCARDIAL INFARCTION [None]
